FAERS Safety Report 9797952 (Version 1)
Quarter: 2014Q1

REPORT INFORMATION
  Report Type: Report from Study
  Country: BR (occurrence: BR)
  Receive Date: 20140106
  Receipt Date: 20140106
  Transmission Date: 20141002
  Serious: Yes (Other)
  Sender: FDA-Public Use
  Company Number: PHHY2014BR000570

PATIENT
  Sex: Male
  Weight: 72 kg

DRUGS (2)
  1. ZELMAC [Suspect]
     Indication: CHONDROPATHY
     Dosage: 1 DF, AT NIGHT
  2. ZELMAC [Suspect]
     Indication: OFF LABEL USE

REACTIONS (3)
  - Osteoarthritis [Unknown]
  - Intracranial aneurysm [Unknown]
  - Drug ineffective [Unknown]
